FAERS Safety Report 7072397-8 (Version None)
Quarter: 2010Q4

REPORT INFORMATION
  Report Type: 
  Country: None (occurrence: None)
  Receive Date: 20101029
  Receipt Date: 20100222
  Transmission Date: 20110411
  Serious: No
  Sender: FDA-Public Use
  Company Number: A0840737A

PATIENT
  Age: 59 Year
  Sex: Female

DRUGS (13)
  1. ADVAIR DISKUS 100/50 [Suspect]
     Indication: CHRONIC OBSTRUCTIVE PULMONARY DISEASE
     Dosage: 1PUFF TWICE PER DAY
     Route: 055
     Dates: start: 20090501
  2. ASPIRIN [Concomitant]
  3. LISINOPRIL [Concomitant]
  4. METOPROLOL [Concomitant]
  5. POTASSIUM CHLORIDE [Concomitant]
  6. PREDNISONE [Concomitant]
  7. GLYBURIDE [Concomitant]
  8. METFORMIN [Concomitant]
  9. LASIX [Concomitant]
  10. ALBUTEROL [Concomitant]
  11. SIMVASTATIN [Concomitant]
  12. MULTI-VITAMIN [Concomitant]
  13. LOVAZA [Concomitant]

REACTIONS (2)
  - DRUG INEFFECTIVE [None]
  - PRODUCT QUALITY ISSUE [None]
